FAERS Safety Report 23070674 (Version 1)
Quarter: 2023Q4

REPORT INFORMATION
  Report Type: Spontaneous
  Country: US (occurrence: US)
  Receive Date: 20231016
  Receipt Date: 20231016
  Transmission Date: 20240110
  Serious: Yes (Other)
  Sender: FDA-Public Use
  Company Number: US-AMERICAN REGENT INC-2023002394

PATIENT
  Age: 5 Decade
  Sex: Male

DRUGS (5)
  1. TRANEXAMIC ACID [Suspect]
     Active Substance: TRANEXAMIC ACID
     Indication: Procedural haemorrhage
     Dosage: 500MG BOLUS INTRAOPERATIVELY
  2. TRANEXAMIC ACID [Suspect]
     Active Substance: TRANEXAMIC ACID
     Dosage: ANOTHER 500MG BOLUS 10MIN LATER FOR INTRAOPERATIVE BLEEDING
  3. DESMOPRESSIN ACETATE [Suspect]
     Active Substance: DESMOPRESSIN ACETATE
     Indication: Procedural haemorrhage
     Dosage: 0.3 MCG/KG
     Route: 065
  4. ASPIRIN [Concomitant]
     Active Substance: ASPIRIN
     Indication: Antiplatelet therapy
     Dosage: UNK; CONTINUE HIS ASPIRIN IN THE PERIOPERATIVE PERIOD
     Route: 065
  5. CLOPIDOGREL [Concomitant]
     Active Substance: CLOPIDOGREL BISULFATE
     Indication: Antiplatelet therapy
     Dosage: UNK; INSTRUCTED TO STOP 5 DAYS BEFORE SURGERY
     Route: 065

REACTIONS (3)
  - Vascular stent thrombosis [Recovering/Resolving]
  - Acute myocardial infarction [Recovering/Resolving]
  - Product use in unapproved indication [Unknown]
